FAERS Safety Report 15597797 (Version 1)
Quarter: 2018Q4

REPORT INFORMATION
  Report Type: Report from Study
  Country: US (occurrence: US)
  Receive Date: 20181108
  Receipt Date: 20181108
  Transmission Date: 20190205
  Serious: Yes (Life-Threatening, Hospitalization)
  Sender: FDA-Public Use
  Company Number: US-MYLANLABS-2018M1082092

PATIENT
  Age: 3 Year
  Sex: Male

DRUGS (3)
  1. MELPHALAN. [Suspect]
     Active Substance: MELPHALAN
     Indication: NEUROBLASTOMA
     Route: 065
  2. CARBOPLATIN. [Suspect]
     Active Substance: CARBOPLATIN
     Indication: NEUROBLASTOMA
     Route: 065
  3. ETOPOSIDE. [Suspect]
     Active Substance: ETOPOSIDE
     Indication: NEUROBLASTOMA
     Route: 065

REACTIONS (6)
  - Acute kidney injury [Recovered/Resolved]
  - Blindness cortical [Recovered/Resolved]
  - Central nervous system haemorrhage [Recovered/Resolved]
  - Respiratory failure [Recovered/Resolved]
  - Cardiac tamponade [Recovered/Resolved]
  - Thrombotic microangiopathy [Recovered/Resolved]
